FAERS Safety Report 4982864-6 (Version None)
Quarter: 2006Q2

REPORT INFORMATION
  Report Type: 
  Country: None (occurrence: None)
  Receive Date: 20060420
  Receipt Date: 20060411
  Transmission Date: 20061013
  Serious: Yes (Life-Threatening)
  Sender: FDA-Public Use
  Company Number: 2006-01445

PATIENT
  Age: 53 Year
  Sex: Male

DRUGS (1)
  1. HALOPERIDOL LACTATE [Suspect]
     Indication: PSYCHOTIC DISORDER
     Dosage: 5 MG,SINGLE, INTRAMUSCULAR; 15 MG, (DOSES OF 2-5MG), INTRAMUSCULAR
     Route: 030

REACTIONS (1)
  - HYPOGLYCAEMIA [None]
